FAERS Safety Report 10706923 (Version 2)
Quarter: 2015Q2

REPORT INFORMATION
  Report Type: Spontaneous
  Country: JP (occurrence: JP)
  Receive Date: 20150113
  Receipt Date: 20150408
  Transmission Date: 20150821
  Serious: Yes (Death)
  Sender: FDA-Public Use
  Company Number: JP-TEVA-533685ISR

PATIENT
  Age: 65 Year
  Sex: Male
  Weight: 54 kg

DRUGS (7)
  1. E-FEN BUCCAL [Suspect]
     Active Substance: FENTANYL CITRATE
     Dosage: 100 MICROGRAM DAILY;
     Route: 002
     Dates: start: 20140618, end: 20140626
  2. CELECOX [Concomitant]
     Active Substance: CELECOXIB
     Indication: CANCER PAIN
     Dosage: 400 MILLIGRAM DAILY;
     Route: 048
     Dates: start: 201406, end: 20140907
  3. VOLTAREN(DICLOFENAC SODIUM) [Concomitant]
     Indication: CANCER PAIN
     Dosage: 50 MILLIGRAM DAILY;
     Route: 054
     Dates: start: 20140625, end: 20140907
  4. FENTOS(FENTANYL CITRATE) [Concomitant]
     Indication: CANCER PAIN
     Dosage: 1 MILLIGRAM DAILY;
     Route: 062
     Dates: start: 20140728, end: 20140907
  5. E-FEN BUCCAL [Suspect]
     Active Substance: FENTANYL CITRATE
     Indication: BREAKTHROUGH PAIN
     Dosage: 50-150 MICROGRAM DAILY
     Route: 002
     Dates: start: 20140805, end: 20140907
  6. E-FEN BUCCAL [Suspect]
     Active Substance: FENTANYL CITRATE
     Dosage: 100 MICROGRAM DAILY; DAILY DOSE 0-100 MICRIGRAM
     Route: 002
     Dates: start: 20140611, end: 20140617
  7. LYRICA(PREGABALIN) [Concomitant]
     Indication: CANCER PAIN
     Dosage: 150 MILLIGRAM DAILY;
     Route: 048
     Dates: start: 201406, end: 20140907

REACTIONS (2)
  - Concomitant disease aggravated [Fatal]
  - Gastric cancer [Fatal]

NARRATIVE: CASE EVENT DATE: 20140907
